FAERS Safety Report 12560057 (Version 1)
Quarter: 2016Q3

REPORT INFORMATION
  Report Type: Spontaneous
  Country: US (occurrence: None)
  Receive Date: 20160714
  Receipt Date: 20160714
  Transmission Date: 20161109
  Serious: Yes (Other)
  Sender: FDA-Public Use
  Company Number: None

PATIENT
  Age: 36 Year
  Sex: Female
  Weight: 54.43 kg

DRUGS (2)
  1. MIRENA [Suspect]
     Active Substance: LEVONORGESTREL
  2. HERBAL REMEDIES (SA-4, MPS-1, CHINESE MINERAL CHI) [Concomitant]

REACTIONS (39)
  - Dyspepsia [None]
  - Hot flush [None]
  - Arthralgia [None]
  - Muscle spasms [None]
  - Mental disorder [None]
  - Feeling abnormal [None]
  - Anxiety [None]
  - Dissociation [None]
  - Libido decreased [None]
  - Menstrual disorder [None]
  - Weight increased [None]
  - Motion sickness [None]
  - Irritability [None]
  - Ocular discomfort [None]
  - Lyme disease [None]
  - Sepsis [None]
  - Mood swings [None]
  - Myalgia [None]
  - Amnesia [None]
  - Neck pain [None]
  - Hyperchlorhydria [None]
  - Headache [None]
  - Pain in extremity [None]
  - Disturbance in attention [None]
  - Depression [None]
  - Fatigue [None]
  - Candida infection [None]
  - Hormone level abnormal [None]
  - Asthenia [None]
  - Presyncope [None]
  - Back pain [None]
  - Hallucination, auditory [None]
  - Jaw disorder [None]
  - Skin discolouration [None]
  - Musculoskeletal stiffness [None]
  - Musculoskeletal pain [None]
  - Partner stress [None]
  - Nervousness [None]
  - Umbilical hernia [None]
